FAERS Safety Report 6917722-0 (Version None)
Quarter: 2010Q3

REPORT INFORMATION
  Report Type: 
  Country: None (occurrence: None)
  Receive Date: 20100806
  Receipt Date: 20100803
  Transmission Date: 20110219
  Serious: Yes (Hospitalization)
  Sender: FDA-Public Use
  Company Number: WAES 1008USA00323

PATIENT
  Age: 54 Year
  Sex: Male

DRUGS (6)
  1. DECADRON [Suspect]
     Indication: PRODUCT USED FOR UNKNOWN INDICATION
     Dosage: 4 MG/BID/PO
     Route: 048
     Dates: start: 20100608, end: 20100716
  2. IMC-11F8 (NECITUMUMAB) [Suspect]
     Indication: NON-SMALL CELL LUNG CANCER
     Dosage: 600 MG/IV
     Route: 042
     Dates: start: 20100608, end: 20100707
  3. PEMETREXED DISODIUM [Suspect]
     Indication: NON-SMALL CELL LUNG CANCER
     Dosage: 893 MG/Q3W/IV
     Route: 042
     Dates: start: 20100608, end: 20100707
  4. CISPLATIN [Suspect]
     Indication: NON-SMALL CELL LUNG CANCER
     Dosage: 133 MG/Q3W/IV
     Route: 042
     Dates: start: 20100608, end: 20100707
  5. ASPIRIN [Concomitant]
  6. IBUPROFEN [Concomitant]

REACTIONS (2)
  - HAEMOGLOBIN DECREASED [None]
  - MELAENA [None]
